FAERS Safety Report 21136654 (Version 1)
Quarter: 2022Q3

REPORT INFORMATION
  Report Type: Spontaneous
  Country: US (occurrence: None)
  Receive Date: 20220726
  Receipt Date: 20220726
  Transmission Date: 20221027
  Serious: No
  Sender: FDA-Public Use
  Company Number: None

PATIENT
  Age: 89 Year
  Sex: Male

DRUGS (3)
  1. APIXABAN [Suspect]
     Active Substance: APIXABAN
     Indication: Atrial fibrillation
     Dates: start: 20170728
  2. APIXABAN [Suspect]
     Active Substance: APIXABAN
     Indication: Vascular device user
     Dates: start: 20010101
  3. APIXABAN [Suspect]
     Active Substance: APIXABAN
     Dosage: DATE OF USE : 01/01/2001 THRU  N/A
     Dates: start: 20220728

REACTIONS (5)
  - Colitis [None]
  - Urinary tract infection [None]
  - Gastric haemorrhage [None]
  - Occult blood positive [None]
  - Faeces hard [None]

NARRATIVE: CASE EVENT DATE: 20220317
